FAERS Safety Report 14608190 (Version 1)
Quarter: 2018Q1

REPORT INFORMATION
  Report Type: Report from Study
  Country: CZ (occurrence: CZ)
  Receive Date: 20180307
  Receipt Date: 20180307
  Transmission Date: 20180509
  Serious: Yes (Death, Hospitalization, Other)
  Sender: FDA-Public Use
  Company Number: CZ-ACTELION-A-CH2014-107873

PATIENT
  Age: 69 Year
  Sex: Male
  Weight: 92 kg

DRUGS (14)
  1. METOPROLOL. [Concomitant]
     Active Substance: METOPROLOL
     Dosage: UNK
     Dates: start: 2008
  2. SPIRONOLACTONE. [Concomitant]
     Active Substance: SPIRONOLACTONE
     Dosage: UNK
     Dates: start: 2012
  3. FUROSEMID [Concomitant]
     Active Substance: FUROSEMIDE
     Dosage: UNK
     Dates: start: 2012
  4. ALLOPURINOL. [Concomitant]
     Active Substance: ALLOPURINOL
     Dosage: UNK
     Dates: start: 2012
  5. METFORMIN [Concomitant]
     Active Substance: METFORMIN HYDROCHLORIDE
     Dosage: UNK
     Dates: start: 2011
  6. SALMETEROL/FLUTICASONPROPIONAAT [Concomitant]
     Active Substance: FLUTICASONE PROPIONATE\SALMETEROL XINAFOATE
     Dosage: UNK
     Dates: start: 2012
  7. MACITENTAN [Suspect]
     Active Substance: MACITENTAN
     Indication: PULMONARY HYPERTENSION
     Dosage: 10 MG, OD
     Route: 048
     Dates: start: 20141105, end: 20141106
  8. OXYGEN. [Concomitant]
     Active Substance: OXYGEN
  9. RAMIPRIL. [Concomitant]
     Active Substance: RAMIPRIL
     Dosage: UNK
     Dates: start: 2014
  10. PROPAFENON [Concomitant]
     Active Substance: PROPAFENONE
     Dosage: UNK
     Dates: start: 2008
  11. DABIGATRAN [Concomitant]
     Active Substance: DABIGATRAN
     Dosage: UNK
     Dates: start: 2012
  12. ATORVASTATIN [Concomitant]
     Active Substance: ATORVASTATIN
     Dosage: UNK
     Dates: start: 2008
  13. VILDAGLIPTIN [Concomitant]
     Active Substance: VILDAGLIPTIN
     Dosage: UNK
     Dates: start: 2011
  14. MACITENTAN [Suspect]
     Active Substance: MACITENTAN
     Indication: PULMONARY HYPERTENSION
     Dosage: 10 MG, OD
     Route: 048
     Dates: start: 20141105, end: 20141106

REACTIONS (11)
  - Respiratory failure [Fatal]
  - Respiratory tract infection bacterial [Fatal]
  - Renal impairment [Unknown]
  - Haemoptysis [Fatal]
  - Oxygen saturation decreased [Fatal]
  - Respiratory tract haemorrhage [Fatal]
  - Pyrexia [Fatal]
  - Dyspnoea [Fatal]
  - Respiratory tract infection [Fatal]
  - Tachypnoea [Fatal]
  - C-reactive protein increased [Fatal]

NARRATIVE: CASE EVENT DATE: 20141105
